FAERS Safety Report 4426909-0 (Version None)
Quarter: 2004Q3

REPORT INFORMATION
  Report Type: 
  Country: None (occurrence: None)
  Receive Date: 20040811
  Receipt Date: 20040806
  Transmission Date: 20050211
  Serious: Yes (Hospitalization, Other)
  Sender: FDA-Public Use
  Company Number: FRWYE952806AUG04

PATIENT
  Age: 78 Year
  Sex: Female

DRUGS (1)
  1. EFFEXOR [Suspect]
     Dosage: 50 MG 1X PER 1 DAY , ORAL
     Route: 048
     Dates: start: 20040630, end: 20040706

REACTIONS (3)
  - FALL [None]
  - HYPONATRAEMIA [None]
  - TRAUMATIC BRAIN INJURY [None]
